FAERS Safety Report 14816674 (Version 1)
Quarter: 2018Q2

REPORT INFORMATION
  Report Type: Spontaneous
  Country: US (occurrence: US)
  Receive Date: 20180417
  Receipt Date: 20180417
  Transmission Date: 20180711
  Serious: Yes (Hospitalization)
  Sender: FDA-Public Use
  Company Number: None

PATIENT
  Age: 84 Year
  Sex: Male

DRUGS (1)
  1. LONSURF [Suspect]
     Active Substance: TIPIRACIL HYDROCHLORIDE\TRIFLURIDINE
     Dosage: 8.19MG TAB 4BID; PO?
     Route: 048
     Dates: start: 20180216

REACTIONS (2)
  - Therapy cessation [None]
  - Colostomy [None]

NARRATIVE: CASE EVENT DATE: 20180221
